FAERS Safety Report 9512505 (Version 7)
Quarter: 2013Q4

REPORT INFORMATION
  Report Type: Spontaneous
  Country: US (occurrence: US)
  Receive Date: 20130910
  Receipt Date: 20131209
  Transmission Date: 20140711
  Serious: Yes (Hospitalization, Other)
  Sender: FDA-Public Use
  Company Number: US-VERTEX PHARMACEUTICALS INC-2013-009160

PATIENT
  Age: 50 Year
  Sex: Male
  Weight: 67.12 kg

DRUGS (13)
  1. INCIVEK [Suspect]
     Indication: HEPATITIS C
     Dosage: 750 MG, TID
     Route: 048
     Dates: start: 20130820, end: 20130917
  2. INCIVEK [Suspect]
     Dosage: 750 MG, TID
     Route: 048
     Dates: start: 20131103
  3. RIBAVIRIN [Suspect]
     Indication: HEPATITIS C
     Dosage: 600 MG AM, 400 MG PM (5 TABS QD)
     Route: 048
     Dates: start: 20130820
  4. RIBAVIRIN [Suspect]
     Dosage: 200 MG, TID (3 TABS QD)
     Route: 048
     Dates: end: 20130917
  5. RIBAVIRIN [Suspect]
     Dosage: 400 MG, BID (2 TABS BID)
     Route: 048
     Dates: start: 20131103
  6. PEGASYS [Suspect]
     Indication: HEPATITIS C
     Dosage: 180 ?G, QW
     Route: 058
     Dates: start: 20130820, end: 20130917
  7. PEGASYS [Suspect]
     Dosage: 180 ?G, UNK
     Route: 058
     Dates: start: 20131103
  8. VICODIN [Concomitant]
     Indication: PAIN
     Dosage: UNK, PRN
     Route: 048
  9. XANAX [Concomitant]
     Indication: ANXIETY
     Dosage: UNK, TID
     Route: 048
  10. OXYCODONE [Concomitant]
     Indication: BACK PAIN
     Dosage: UNK, PRN
     Route: 048
  11. ADVAIR HFA [Concomitant]
     Indication: ASTHMA
     Dosage: UNK, PRN
  12. CELEXA [Concomitant]
     Indication: DEPRESSION
     Dosage: 40 MG, QD
     Route: 048
  13. PRILOSEC [Concomitant]
     Indication: GASTROOESOPHAGEAL REFLUX DISEASE
     Route: 048

REACTIONS (31)
  - Atypical pneumonia [Recovered/Resolved]
  - Mycobacterium avium complex infection [Recovered/Resolved]
  - White blood cell count decreased [Recovered/Resolved]
  - Natural killer T cell count decreased [Unknown]
  - Incorrect drug administration duration [Recovered/Resolved]
  - Influenza like illness [Not Recovered/Not Resolved]
  - Dysuria [Not Recovered/Not Resolved]
  - Eye pruritus [Not Recovered/Not Resolved]
  - Decreased appetite [Not Recovered/Not Resolved]
  - Abdominal discomfort [Not Recovered/Not Resolved]
  - Flatulence [Not Recovered/Not Resolved]
  - Mood swings [Not Recovered/Not Resolved]
  - Irritability [Not Recovered/Not Resolved]
  - Drug dose omission [Recovered/Resolved]
  - Feeling of body temperature change [Recovered/Resolved]
  - Paraesthesia [Recovered/Resolved]
  - Hypoaesthesia [Recovered/Resolved]
  - Dizziness [Recovered/Resolved]
  - Head discomfort [Recovered/Resolved]
  - Formication [Not Recovered/Not Resolved]
  - Nervousness [Not Recovered/Not Resolved]
  - Insomnia [Not Recovered/Not Resolved]
  - Depression [Not Recovered/Not Resolved]
  - Malaise [Not Recovered/Not Resolved]
  - Asthenia [Not Recovered/Not Resolved]
  - Fatigue [Not Recovered/Not Resolved]
  - Pruritus [Not Recovered/Not Resolved]
  - Nausea [Not Recovered/Not Resolved]
  - Dysgeusia [Not Recovered/Not Resolved]
  - Anorectal discomfort [Not Recovered/Not Resolved]
  - Diarrhoea [Not Recovered/Not Resolved]
